FAERS Safety Report 19324756 (Version 1)
Quarter: 2021Q2

REPORT INFORMATION
  Report Type: Report from Study
  Country: JP (occurrence: JP)
  Receive Date: 20210528
  Receipt Date: 20210528
  Transmission Date: 20210717
  Serious: Yes (Hospitalization)
  Sender: FDA-Public Use
  Company Number: PHJP2016JP031066

PATIENT
  Age: 79 Year
  Sex: Male
  Weight: 53.4 kg

DRUGS (15)
  1. BAYASPIRIN [Concomitant]
     Active Substance: ASPIRIN
     Indication: MYOCARDIAL INFARCTION
     Dosage: 100 MG, QD
     Route: 048
     Dates: start: 20101224
  2. WARFARIN [Concomitant]
     Active Substance: WARFARIN
     Dosage: 0.5 MG, QD
     Route: 048
  3. CRESTOR [Concomitant]
     Active Substance: ROSUVASTATIN CALCIUM
     Indication: DYSLIPIDAEMIA
     Dosage: 5 MG, QD
     Route: 048
     Dates: start: 20101224
  4. NICORANDIL [Concomitant]
     Active Substance: NICORANDIL
     Indication: MYOCARDIAL INFARCTION
     Dosage: 5 MG, TID
     Route: 048
  5. WARFARIN [Concomitant]
     Active Substance: WARFARIN
     Indication: THROMBOSIS PROPHYLAXIS
     Dosage: 2 MG, QD
     Route: 048
  6. NO TREATMENT RECEIVED [Suspect]
     Active Substance: UNSPECIFIED INGREDIENT
     Indication: CARDIAC FAILURE CHRONIC
     Dosage: NO TREATMENT
     Route: 065
  7. AZOSEMIDE [Concomitant]
     Active Substance: AZOSEMIDE
     Indication: CARDIAC FAILURE
     Dosage: 60 MG, QD
     Route: 048
     Dates: end: 20161026
  8. FEBURIC [Concomitant]
     Active Substance: FEBUXOSTAT
     Indication: HYPERURICAEMIA
     Dosage: 20 MG, QD
     Route: 048
  9. BROTIZOLAM [Concomitant]
     Active Substance: BROTIZOLAM
     Indication: INSOMNIA
     Dosage: 0.25 MG, QD
     Route: 048
  10. LCZ696 [Suspect]
     Active Substance: SACUBITRIL\VALSARTAN
     Dosage: 50 MG, BID
     Route: 048
     Dates: start: 20161008, end: 20161020
  11. CARVEDILOL. [Concomitant]
     Active Substance: CARVEDILOL
     Indication: CARDIAC FAILURE
     Dosage: 5 MG, BID
     Route: 048
  12. RABEPRAZOLE NA [Concomitant]
     Active Substance: RABEPRAZOLE SODIUM
     Indication: PROPHYLAXIS AGAINST GASTROINTESTINAL ULCER
     Dosage: 10 MG, QD
     Route: 048
     Dates: start: 20101224
  13. SELARA [Concomitant]
     Active Substance: EPLERENONE
     Indication: CARDIAC FAILURE
     Dosage: 25 MG, QD
     Route: 048
  14. DENOPAMINE [Concomitant]
     Active Substance: DENOPAMINE
     Indication: ISCHAEMIC CARDIOMYOPATHY
     Dosage: 20 MG, TID
     Route: 048
     Dates: start: 201602, end: 20161101
  15. IMIDAPRIL [Concomitant]
     Active Substance: IMIDAPRIL
     Indication: CARDIAC FAILURE
     Dosage: 5 MG, QD
     Route: 048
     Dates: start: 20161022

REACTIONS (1)
  - Cardiac failure acute [Recovered/Resolved]

NARRATIVE: CASE EVENT DATE: 20161026
